FAERS Safety Report 4891892-0 (Version None)
Quarter: 2006Q1

REPORT INFORMATION
  Report Type: 
  Country: None (occurrence: None)
  Receive Date: 20060123
  Receipt Date: 20060110
  Transmission Date: 20060701
  Serious: Yes (Other)
  Sender: FDA-Public Use
  Company Number: 2005072058

PATIENT
  Sex: Male
  Weight: 19 kg

DRUGS (2)
  1. GENOTROPIN [Suspect]
     Indication: HYPOPITUITARISM
     Dosage: 1.4.I.U. (1.4 I.U., 6 DAYS A WEEK), SUBCUTANEOUS
     Route: 058
     Dates: start: 20040214
  2. PREDNISOLONE [Concomitant]

REACTIONS (4)
  - CRANIOPHARYNGIOMA [None]
  - HEMIANOPIA [None]
  - NEOPLASM RECURRENCE [None]
  - VISUAL FIELD DEFECT [None]
